FAERS Safety Report 23908524 (Version 1)
Quarter: 2024Q2

REPORT INFORMATION
  Report Type: Spontaneous
  Country: DK (occurrence: DK)
  Receive Date: 20240528
  Receipt Date: 20240528
  Transmission Date: 20240715
  Serious: Yes (Life-Threatening, Hospitalization, Disabling, Other)
  Sender: FDA-Public Use
  Company Number: None

PATIENT
  Age: 36 Year
  Sex: Female
  Weight: 62 kg

DRUGS (2)
  1. AIMOVIG [Suspect]
     Active Substance: ERENUMAB-AOOE
     Indication: Migraine
     Dosage: 140 MG, QMO (TREATMENT WAS PAUSED DURING PREGNANCY, STARTED AGAIN IN JUNE 2023
     Route: 058
     Dates: start: 2019
  2. AMITRIPTYLINE [Concomitant]
     Active Substance: AMITRIPTYLINE
     Indication: Pain
     Dosage: 50 MG, QD
     Route: 065
     Dates: start: 2021

REACTIONS (9)
  - Cerebrovascular accident [Recovering/Resolving]
  - Speech disorder [Recovering/Resolving]
  - Sensory disturbance [Unknown]
  - Facial paresis [Recovering/Resolving]
  - Balance disorder [Recovering/Resolving]
  - Aphasia [Recovering/Resolving]
  - Ataxia [Unknown]
  - Headache [Unknown]
  - Dizziness [Unknown]

NARRATIVE: CASE EVENT DATE: 20240308
